FAERS Safety Report 7194560-8 (Version None)
Quarter: 2010Q4

REPORT INFORMATION
  Report Type: 
  Country: None (occurrence: None)
  Receive Date: 20101223
  Receipt Date: 20101001
  Transmission Date: 20110411
  Serious: No
  Sender: FDA-Public Use
  Company Number: US-AMGEN-TCS442873

PATIENT

DRUGS (1)
  1. ENBREL [Suspect]
     Indication: RHEUMATOID ARTHRITIS
     Dosage: 50 MG, QWK
     Route: 058

REACTIONS (7)
  - ARTHRALGIA [None]
  - BACK PAIN [None]
  - DYSSTASIA [None]
  - FALL [None]
  - GAIT DISTURBANCE [None]
  - PAIN IN EXTREMITY [None]
  - RHEUMATOID ARTHRITIS [None]
